FAERS Safety Report 9760375 (Version 3)
Quarter: 2015Q3

REPORT INFORMATION
  Report Type: Spontaneous
  Country: US (occurrence: US)
  Receive Date: 20131216
  Receipt Date: 20150806
  Transmission Date: 20151125
  Serious: Yes (Hospitalization)
  Sender: FDA-Public Use
  Company Number: US-GILEAD-2010-0029368

PATIENT
  Age: 60 Year
  Sex: Male

DRUGS (10)
  1. METOLAZONE. [Concomitant]
     Active Substance: METOLAZONE
  2. MORPHINE SULFATE. [Concomitant]
     Active Substance: MORPHINE SULFATE
  3. LETAIRIS [Suspect]
     Active Substance: AMBRISENTAN
     Indication: PULMONARY ARTERIAL HYPERTENSION
     Route: 048
     Dates: start: 20071004
  4. METHADONE HCL [Concomitant]
     Active Substance: METHADONE HYDROCHLORIDE
  5. ADCIRCA [Concomitant]
     Active Substance: TADALAFIL
  6. FUROSEMIDE. [Concomitant]
     Active Substance: FUROSEMIDE
  7. SPIRONOLACTONE. [Concomitant]
     Active Substance: SPIRONOLACTONE
  8. PREDNISONE. [Concomitant]
     Active Substance: PREDNISONE
  9. POTASSIUM [Concomitant]
     Active Substance: POTASSIUM
  10. OMEPRAZOLE. [Concomitant]
     Active Substance: OMEPRAZOLE

REACTIONS (2)
  - Dyspnoea [Recovering/Resolving]
  - Fluid retention [Recovering/Resolving]

NARRATIVE: CASE EVENT DATE: 20100517
